FAERS Safety Report 8115984 (Version 5)
Quarter: 2016Q2

REPORT INFORMATION
  Report Type: Spontaneous
  Country: US (occurrence: US)
  Receive Date: 20110831
  Receipt Date: 20160621
  Transmission Date: 20160815
  Serious: Yes (Hospitalization, Other)
  Sender: FDA-Public Use
  Company Number: US-ASTRAZENECA-2010SE19274

PATIENT
  Age: 899 Month
  Sex: Female
  Weight: 63.5 kg

DRUGS (10)
  1. SYMBICORT [Suspect]
     Active Substance: BUDESONIDE\FORMOTEROL FUMARATE DIHYDRATE
     Indication: CHRONIC OBSTRUCTIVE PULMONARY DISEASE
     Dosage: 80/4.5 UG, 2 PUFFS TWICE A DAY
     Route: 055
     Dates: start: 2008
  2. SYMBICORT [Suspect]
     Active Substance: BUDESONIDE\FORMOTEROL FUMARATE DIHYDRATE
     Indication: EMPHYSEMA
     Dosage: 80/4.5 UG, 2 PUFFS TWICE A DAY
     Route: 055
     Dates: start: 2008
  3. NORCO [Concomitant]
     Active Substance: ACETAMINOPHEN\HYDROCODONE BITARTRATE
     Indication: MUSCULOSKELETAL DISCOMFORT
     Dosage: 10-325 MG AS NEEDED, BUT STATED SHE TAKES ONE HALF A PILL (5-162.5 MG) AS NEEDED
     Route: 048
     Dates: start: 2003
  4. ARIMIDEX [Suspect]
     Active Substance: ANASTROZOLE
     Indication: LUNG CARCINOMA CELL TYPE UNSPECIFIED STAGE IV
     Route: 048
     Dates: start: 201012
  5. SYMBICORT [Suspect]
     Active Substance: BUDESONIDE\FORMOTEROL FUMARATE DIHYDRATE
     Indication: LUNG NEOPLASM MALIGNANT
     Dosage: 80/4.5 UG, 2 PUFFS TWICE A DAY
     Route: 055
     Dates: start: 2008
  6. NORCO [Concomitant]
     Active Substance: ACETAMINOPHEN\HYDROCODONE BITARTRATE
     Indication: MUSCULOSKELETAL PAIN
     Dosage: 10-325 MG AS NEEDED, BUT STATED SHE TAKES ONE HALF A PILL (5-162.5 MG) AS NEEDED
     Route: 048
     Dates: start: 2003
  7. AZO [Concomitant]
     Active Substance: PHENAZOPYRIDINE HYDROCHLORIDE
     Indication: URINARY TRACT INFECTION
  8. NORCO [Concomitant]
     Active Substance: ACETAMINOPHEN\HYDROCODONE BITARTRATE
     Indication: BACK DISORDER
     Dosage: 10-325 MG AS NEEDED, BUT STATED SHE TAKES ONE HALF A PILL (5-162.5 MG) AS NEEDED
     Route: 048
     Dates: start: 2003
  9. VITAMINS [Concomitant]
     Active Substance: VITAMINS
     Route: 048
  10. XANAX [Concomitant]
     Active Substance: ALPRAZOLAM
     Indication: PANIC ATTACK
     Dosage: 0.25 MG (ONE HALF A PILL) ORALLY 2 TO 3 TIMES A WEEK, ALTHOUGH IT IS PRESCRIBED 0.5 MG TWICE A DA...
     Route: 048
     Dates: start: 2003

REACTIONS (18)
  - Lung carcinoma cell type unspecified stage IV [Not Recovered/Not Resolved]
  - Musculoskeletal pain [Not Recovered/Not Resolved]
  - Product use issue [Unknown]
  - Renal cyst infection [Not Recovered/Not Resolved]
  - Fibromyalgia [Not Recovered/Not Resolved]
  - Pollakiuria [Not Recovered/Not Resolved]
  - Malaise [Unknown]
  - Urinary tract infection [Unknown]
  - Rib fracture [Not Recovered/Not Resolved]
  - Off label use [Unknown]
  - Neck pain [Unknown]
  - Pain [Unknown]
  - Insomnia [Not Recovered/Not Resolved]
  - Heart rate abnormal [Unknown]
  - Dysuria [Not Recovered/Not Resolved]
  - Road traffic accident [Not Recovered/Not Resolved]
  - Back pain [Not Recovered/Not Resolved]
  - Fall [Not Recovered/Not Resolved]

NARRATIVE: CASE EVENT DATE: 200912
